FAERS Safety Report 4678146-2 (Version None)
Quarter: 2005Q2

REPORT INFORMATION
  Report Type: 
  Country: None (occurrence: None)
  Receive Date: 20050527
  Receipt Date: 20050520
  Transmission Date: 20051028
  Serious: Yes (Other)
  Sender: FDA-Public Use
  Company Number: 2005054834

PATIENT
  Age: 29 Year
  Sex: Male
  Weight: 75 kg

DRUGS (3)
  1. LYRICA [Suspect]
     Indication: NEUROPATHIC PAIN
     Dosage: 150 MG, ORAL
     Route: 048
     Dates: start: 20050322, end: 20050403
  2. ALL OTHER THERAPEUTIC PRODUCTS (ALL OTHER THERAPEUTIC PRODUCTS) [Concomitant]
  3. OXYCODONE HCL [Concomitant]

REACTIONS (3)
  - OPTIC NEURITIS [None]
  - THYROID NEOPLASM [None]
  - TOXOPLASMOSIS [None]
